FAERS Safety Report 13896425 (Version 1)
Quarter: 2017Q3

REPORT INFORMATION
  Report Type: Spontaneous
  Country: US (occurrence: None)
  Receive Date: 20170816
  Receipt Date: 20170816
  Transmission Date: 20171127
  Serious: No
  Sender: FDA-Public Use
  Company Number: None

PATIENT
  Age: 68 Year
  Sex: Male
  Weight: 133.81 kg

DRUGS (1)
  1. EPLERENONE. [Suspect]
     Active Substance: EPLERENONE
     Indication: HYPERTENSION
     Route: 048
     Dates: start: 20170223, end: 20170315

REACTIONS (4)
  - Dizziness [None]
  - Diarrhoea [None]
  - Acute myocardial infarction [None]
  - Hypotension [None]

NARRATIVE: CASE EVENT DATE: 20170316
